FAERS Safety Report 12908065 (Version 15)
Quarter: 2019Q3

REPORT INFORMATION
  Report Type: Report from Study
  Country: US (occurrence: US)
  Receive Date: 20161103
  Receipt Date: 20190822
  Transmission Date: 20191004
  Serious: Yes (Hospitalization)
  Sender: FDA-Public Use
  Company Number: US-ACTELION-A-US2016-144695

PATIENT
  Age: 51 Year
  Sex: Female

DRUGS (25)
  1. DILTIAZEM. [Concomitant]
     Active Substance: DILTIAZEM
     Dosage: 120 MG, UNK
  2. FOLIC ACID. [Concomitant]
     Active Substance: FOLIC ACID
  3. TRACLEER [Suspect]
     Active Substance: BOSENTAN
     Indication: PULMONARY ARTERIAL HYPERTENSION
     Dosage: 125 MG, BID
     Route: 048
     Dates: start: 20160128
  4. PREDNISONE. [Concomitant]
     Active Substance: PREDNISONE
     Dosage: 10 MG, UNK
  5. COUMADIN [Concomitant]
     Active Substance: WARFARIN SODIUM
     Dosage: 1 MG, UNK
  6. ELIQUIS [Concomitant]
     Active Substance: APIXABAN
  7. IRON [Concomitant]
     Active Substance: IRON
  8. FLECAINIDE ACETATE. [Concomitant]
     Active Substance: FLECAINIDE ACETATE
  9. ADCIRCA [Concomitant]
     Active Substance: TADALAFIL
     Dosage: 20 MG, BID
  10. HUMALOG [Concomitant]
     Active Substance: INSULIN LISPRO
     Dosage: (50-50) 100 UNITS
  11. AZATHIOPRINE. [Concomitant]
     Active Substance: AZATHIOPRINE
     Dosage: 50 MG, BID
  12. FLECAINIDE [Concomitant]
     Active Substance: FLECAINIDE
     Dosage: 50 MG, BID
  13. TRACLEER [Suspect]
     Active Substance: BOSENTAN
     Dosage: 125 MG, BID
     Route: 048
     Dates: start: 20160128
  14. COUMADIN [Concomitant]
     Active Substance: WARFARIN SODIUM
     Dosage: 10 MG, UNK
  15. ATORVASTATIN CALCIUM. [Concomitant]
     Active Substance: ATORVASTATIN CALCIUM
  16. CARVEDILOL. [Concomitant]
     Active Substance: CARVEDILOL
     Dosage: 12.5 MG, UNK
  17. LASIX [Concomitant]
     Active Substance: FUROSEMIDE
  18. TUMS [Concomitant]
     Active Substance: CALCIUM CARBONATE
  19. ATORVASTATIN [Concomitant]
     Active Substance: ATORVASTATIN
  20. VITAMIN D3 [Concomitant]
     Active Substance: CHOLECALCIFEROL
  21. PULMICORT TURBUHALER [Concomitant]
     Active Substance: BUDESONIDE
  22. TYVASO [Concomitant]
     Active Substance: TREPROSTINIL
     Dosage: UNK
     Route: 065
     Dates: start: 20161214
  23. LOSARTAN POTASSIUM. [Concomitant]
     Active Substance: LOSARTAN POTASSIUM
     Dosage: 50 MG, BID
  24. CYANOCOBALAMIN. [Concomitant]
     Active Substance: CYANOCOBALAMIN
  25. PEPCID [Concomitant]
     Active Substance: FAMOTIDINE

REACTIONS (26)
  - Cough [Not Recovered/Not Resolved]
  - Dizziness [Not Recovered/Not Resolved]
  - Rhinorrhoea [Recovered/Resolved]
  - Dyspnoea [Not Recovered/Not Resolved]
  - Pyrexia [Not Recovered/Not Resolved]
  - Blood glucose increased [Not Recovered/Not Resolved]
  - Pneumonia [Recovered/Resolved]
  - Haemoglobin decreased [Not Recovered/Not Resolved]
  - Gait inability [Recovering/Resolving]
  - Oxygen saturation decreased [Not Recovered/Not Resolved]
  - Productive cough [Not Recovered/Not Resolved]
  - Headache [Not Recovered/Not Resolved]
  - Fatigue [Not Recovered/Not Resolved]
  - Glycosylated haemoglobin increased [Not Recovered/Not Resolved]
  - Blood pressure increased [Recovering/Resolving]
  - Depression [Not Recovered/Not Resolved]
  - Palpitations [Not Recovered/Not Resolved]
  - Blood potassium decreased [Unknown]
  - Asthenia [Not Recovered/Not Resolved]
  - Heart rate increased [Not Recovered/Not Resolved]
  - Nasal congestion [Recovered/Resolved]
  - Hospitalisation [Unknown]
  - Mood altered [Not Recovered/Not Resolved]
  - Malaise [Not Recovered/Not Resolved]
  - Chest pain [Recovering/Resolving]
  - Tachycardia [Recovering/Resolving]

NARRATIVE: CASE EVENT DATE: 20161023
